FAERS Safety Report 24559658 (Version 3)
Quarter: 2024Q4

REPORT INFORMATION
  Report Type: Spontaneous
  Country: CA (occurrence: CA)
  Receive Date: 20241029
  Receipt Date: 20241113
  Transmission Date: 20250115
  Serious: Yes (Other)
  Sender: CELLTRION
  Company Number: CA-PFIZER INC-202300202290

PATIENT

DRUGS (7)
  1. INFLECTRA [Suspect]
     Active Substance: INFLIXIMAB-DYYB
     Indication: Ankylosing spondylitis
     Dosage: 500 MG EVERY 4 WEEKS
     Route: 042
     Dates: start: 20230707
  2. INFLECTRA [Suspect]
     Active Substance: INFLIXIMAB-DYYB
     Dosage: 500 MG EVERY 4 WEEKS
     Route: 042
     Dates: start: 20231024
  3. INFLECTRA [Suspect]
     Active Substance: INFLIXIMAB-DYYB
     Dosage: 500 MG EVERY 4 WEEKS (AFTER 8 WEEKS)
     Route: 042
     Dates: start: 20231220
  4. INFLECTRA [Suspect]
     Active Substance: INFLIXIMAB-DYYB
     Dosage: UNK (PRESCRIBED TREATMENTS ARE EVERY 4 WEEKS)
     Route: 042
     Dates: start: 20240924
  5. INFLECTRA [Suspect]
     Active Substance: INFLIXIMAB-DYYB
     Dosage: 500 MG, AFTER 5 WEEKS AND 6 DAYS (EVERY 4 WEEK)
     Route: 042
     Dates: start: 20241104
  6. PANTOPRAZOLE [Concomitant]
     Active Substance: PANTOPRAZOLE
     Dosage: 1 DF
  7. DICLOFENAC [Concomitant]
     Active Substance: DICLOFENAC
     Dosage: 1 DF

REACTIONS (8)
  - Knee operation [Not Recovered/Not Resolved]
  - COVID-19 [Not Recovered/Not Resolved]
  - Sinusitis [Not Recovered/Not Resolved]
  - Ear infection [Recovered/Resolved]
  - Post procedural complication [Unknown]
  - Off label use [Unknown]
  - Off label use [Unknown]
  - Intentional product use issue [Unknown]

NARRATIVE: CASE EVENT DATE: 20230101
